FAERS Safety Report 10022921 (Version 1)
Quarter: 2014Q1

REPORT INFORMATION
  Report Type: Spontaneous
  Country: US (occurrence: US)
  Receive Date: 20140319
  Receipt Date: 20140319
  Transmission Date: 20141002
  Serious: Yes (Other)
  Sender: FDA-Public Use
  Company Number: US-SANOFI-AVENTIS-2013SA052898

PATIENT
  Age: 12 Year
  Sex: Male

DRUGS (7)
  1. NASACORT AQ [Suspect]
     Indication: ASTHMA
     Route: 065
  2. NASACORT AQ [Suspect]
     Indication: HYPERSENSITIVITY
     Route: 065
  3. FLOVENT [Concomitant]
  4. ALBUTEROL [Concomitant]
  5. SINGULAIR [Concomitant]
  6. LORATADINE [Concomitant]
  7. PREDNISONE [Concomitant]

REACTIONS (2)
  - Adrenal suppression [Not Recovered/Not Resolved]
  - Growth retardation [Not Recovered/Not Resolved]
